FAERS Safety Report 5425300-8 (Version None)
Quarter: 2007Q3

REPORT INFORMATION
  Report Type: 
  Country: None (occurrence: None)
  Receive Date: 20070824
  Receipt Date: 20070817
  Transmission Date: 20080115
  Serious: Yes (Hospitalization, Other)
  Sender: FDA-Public Use
  Company Number: DE-GENENTECH-236157

PATIENT
  Sex: Male
  Weight: 82 kg

DRUGS (6)
  1. RITUXAN [Suspect]
     Indication: NON-HODGKIN'S LYMPHOMA
     Dosage: 700 MG, Q3W
     Route: 042
     Dates: start: 20041102, end: 20050317
  2. RITUXAN [Suspect]
     Dates: start: 20040901, end: 20041201
  3. FLUDARABINE PHOSPHATE [Suspect]
     Indication: NON-HODGKIN'S LYMPHOMA
     Dosage: 38 MG, Q3W
     Dates: start: 20040908, end: 20041203
  4. MITOXANTRONE [Suspect]
     Indication: NON-HODGKIN'S LYMPHOMA
     Dosage: 9 MG, Q3W
     Dates: start: 20040908, end: 20041203
  5. CYCLOPHOSPHAMIDE [Suspect]
     Indication: NON-HODGKIN'S LYMPHOMA
     Dosage: 283 MG, Q3W
     Dates: start: 20040908, end: 20041203
  6. ALLOPURINOL [Concomitant]
     Indication: DRUG USE FOR UNKNOWN INDICATION
     Dates: start: 20031101

REACTIONS (1)
  - PULMONARY FIBROSIS [None]
